FAERS Safety Report 10284886 (Version 3)
Quarter: 2014Q3

REPORT INFORMATION
  Report Type: Report from Study
  Country: US (occurrence: US)
  Receive Date: 20140708
  Receipt Date: 20140716
  Transmission Date: 20150326
  Serious: Yes (Other)
  Sender: FDA-Public Use
  Company Number: US-SANOFI-AVENTIS-2013SA054811

PATIENT
  Age: 59 Year
  Sex: Female

DRUGS (3)
  1. AUBAGIO [Suspect]
     Active Substance: TERIFLUNOMIDE
     Indication: MULTIPLE SCLEROSIS
     Route: 048
     Dates: end: 20140630
  2. AUBAGIO [Suspect]
     Active Substance: TERIFLUNOMIDE
     Indication: MULTIPLE SCLEROSIS
     Route: 048
     Dates: start: 20130328, end: 20140331
  3. AUBAGIO [Suspect]
     Active Substance: TERIFLUNOMIDE
     Indication: MULTIPLE SCLEROSIS
     Route: 065

REACTIONS (16)
  - Urine odour abnormal [Unknown]
  - Fatigue [Recovered/Resolved]
  - Lung neoplasm malignant [Unknown]
  - Gastric cancer [Unknown]
  - Alopecia [Recovered/Resolved]
  - Hepatic cancer [Unknown]
  - Bone cancer [Unknown]
  - Drug dose omission [Unknown]
  - Weight decreased [Not Recovered/Not Resolved]
  - Malignant neoplasm of renal pelvis [Unknown]
  - Diarrhoea [Recovered/Resolved]
  - Hot flush [Unknown]
  - Hypotension [Unknown]
  - Bladder cancer [Unknown]
  - Hyperhidrosis [Unknown]
  - Flushing [Unknown]
